FAERS Safety Report 11177888 (Version 1)
Quarter: 2015Q2

REPORT INFORMATION
  Report Type: Spontaneous
  Country: US (occurrence: None)
  Receive Date: 20150609
  Receipt Date: 20150609
  Transmission Date: 20150821
  Serious: Yes (Disabling)
  Sender: FDA-Public Use
  Company Number: None

PATIENT
  Age: 57 Year
  Sex: Male
  Weight: 72.58 kg

DRUGS (9)
  1. LORAZEPAM. [Concomitant]
     Active Substance: LORAZEPAM
  2. LISINOPRIL. [Concomitant]
     Active Substance: LISINOPRIL
  3. ABILIFY [Suspect]
     Active Substance: ARIPIPRAZOLE
     Indication: AFFECTIVE DISORDER
     Dosage: ONE PILL
     Route: 048
  4. RITALIN [Concomitant]
     Active Substance: METHYLPHENIDATE HYDROCHLORIDE
  5. AMLODIPINE [Concomitant]
     Active Substance: AMLODIPINE BESYLATE
  6. ABILIFY [Concomitant]
     Active Substance: ARIPIPRAZOLE
  7. NEXIUM [Concomitant]
     Active Substance: ESOMEPRAZOLE MAGNESIUM
  8. TEMAZEPAM. [Concomitant]
     Active Substance: TEMAZEPAM
  9. CAFFEINE. [Concomitant]
     Active Substance: CAFFEINE

REACTIONS (6)
  - Cognitive disorder [None]
  - Mental disorder [None]
  - Asthenia [None]
  - Emotional disorder [None]
  - Frustration [None]
  - Withdrawal syndrome [None]

NARRATIVE: CASE EVENT DATE: 20150503
